FAERS Safety Report 5108613-9 (Version None)
Quarter: 2006Q3

REPORT INFORMATION
  Report Type: 
  Country: None (occurrence: None)
  Receive Date: 20060915
  Receipt Date: 20060821
  Transmission Date: 20061208
  Serious: Yes (Other)
  Sender: FDA-Public Use
  Company Number: 2006SP000539

PATIENT
  Age: 45 Year
  Sex: Female

DRUGS (2)
  1. REBETOL [Suspect]
     Indication: HEPATITIS C
  2. INTERFERON (INTERFERON ALFA-2B) [Suspect]
     Indication: HEPATITIS C

REACTIONS (1)
  - HYPERTHYROIDISM [None]
